FAERS Safety Report 5225046-5 (Version None)
Quarter: 2007Q1

REPORT INFORMATION
  Report Type: 
  Country: None (occurrence: None)
  Receive Date: 20070131
  Receipt Date: 20070129
  Transmission Date: 20070707
  Serious: Yes (Hospitalization)
  Sender: FDA-Public Use
  Company Number: FR-GLAXOSMITHKLINE-B0456144A

PATIENT
  Age: 65 Year
  Sex: Male

DRUGS (6)
  1. CLAMOXYL [Suspect]
     Dosage: 1G PER DAY
     Route: 048
     Dates: start: 20070105, end: 20070106
  2. SILOMAT [Concomitant]
     Indication: COUGH
     Route: 048
     Dates: start: 20061226
  3. NEXIUM [Concomitant]
     Dosage: 40MG PER DAY
     Route: 048
     Dates: start: 20061230
  4. DESLORATADINE [Concomitant]
     Dosage: 5MG PER DAY
     Route: 048
  5. CLARITHROMYCIN [Concomitant]
     Dosage: 500MG PER DAY
     Route: 048
     Dates: start: 20061230, end: 20070113
  6. FLAGYL [Concomitant]
     Route: 065

REACTIONS (3)
  - DRUG HYPERSENSITIVITY [None]
  - PRURITUS GENERALISED [None]
  - URTICARIA GENERALISED [None]
